FAERS Safety Report 19561943 (Version 1)
Quarter: 2021Q3

REPORT INFORMATION
  Report Type: Spontaneous
  Country: US (occurrence: US)
  Receive Date: 20210716
  Receipt Date: 20210716
  Transmission Date: 20211014
  Serious: Yes (Hospitalization, Disabling)
  Sender: FDA-Public Use
  Company Number: None

PATIENT
  Age: 26 Year
  Sex: Female
  Weight: 64.35 kg

DRUGS (6)
  1. KRATOM TRAIN WRECK [Suspect]
     Active Substance: HERBALS\MITRAGYNINE
     Indication: DEPRESSION
     Dates: start: 20191001, end: 20200413
  2. PROHAIR [Concomitant]
  3. VITAMIN B12 [Concomitant]
     Active Substance: CYANOCOBALAMIN
  4. VITAMIN D [Concomitant]
     Active Substance: VITAMIN D NOS
  5. GABAPENTIN. [Concomitant]
     Active Substance: GABAPENTIN
  6. ADVIL [Concomitant]
     Active Substance: IBUPROFEN

REACTIONS (10)
  - Anxiety [None]
  - Vitamin B12 deficiency [None]
  - Product complaint [None]
  - Feeling abnormal [None]
  - Delirium [None]
  - Illness [None]
  - Confusional state [None]
  - Aggression [None]
  - Memory impairment [None]
  - Depression [None]

NARRATIVE: CASE EVENT DATE: 20200413
